FAERS Safety Report 16972571 (Version 1)
Quarter: 2019Q4

REPORT INFORMATION
  Report Type: Spontaneous
  Country: US (occurrence: US)
  Receive Date: 20191030
  Receipt Date: 20191030
  Transmission Date: 20200122
  Serious: Yes (Disabling, Other)
  Sender: FDA-Public Use
  Company Number: US-GLENMARK PHARMACEUTICALS-2019GMK043879

PATIENT
  Age: 72 Year
  Sex: Female

DRUGS (1)
  1. TRIAMCINOLONE ACETONIDE. [Suspect]
     Active Substance: TRIAMCINOLONE ACETONIDE
     Indication: PRODUCT USED FOR UNKNOWN INDICATION
     Dosage: UNK; FORMULATION: INJECTION
     Route: 065

REACTIONS (3)
  - Retinal artery occlusion [Not Recovered/Not Resolved]
  - Blindness [Not Recovered/Not Resolved]
  - Corneal oedema [Recovering/Resolving]
